FAERS Safety Report 14543368 (Version 3)
Quarter: 2018Q1

REPORT INFORMATION
  Report Type: Spontaneous
  Country: CN (occurrence: CN)
  Receive Date: 20180216
  Receipt Date: 20180306
  Transmission Date: 20180509
  Serious: Yes (Other)
  Sender: FDA-Public Use
  Company Number: CN-009507513-1802CHN005612

PATIENT
  Age: 22 Year
  Sex: Female
  Weight: 46 kg

DRUGS (2)
  1. DIPROSPAN [Suspect]
     Active Substance: BETAMETHASONE DIPROPIONATE\BETAMETHASONE SODIUM PHOSPHATE
     Indication: ECZEMA
     Dosage: 1 DOSE, UNK
     Route: 030
     Dates: start: 20180207
  2. DIPROSPAN [Suspect]
     Active Substance: BETAMETHASONE DIPROPIONATE\BETAMETHASONE SODIUM PHOSPHATE
     Indication: INFLAMMATION

REACTIONS (5)
  - Pruritus generalised [Not Recovered/Not Resolved]
  - Hypoaesthesia oral [Recovered/Resolved]
  - Urticaria [Not Recovered/Not Resolved]
  - Discomfort [Recovering/Resolving]
  - Hypotension [Recovered/Resolved]

NARRATIVE: CASE EVENT DATE: 20180207
